FAERS Safety Report 26091898 (Version 1)
Quarter: 2025Q4

REPORT INFORMATION
  Report Type: Spontaneous
  Country: IL (occurrence: IL)
  Receive Date: 20251126
  Receipt Date: 20251126
  Transmission Date: 20260118
  Serious: Yes (Hospitalization)
  Sender: REGENERON
  Company Number: IL-ULTRAGENYX PHARMACEUTICAL INC.-IL-UGX-25-02302

PATIENT
  Age: 57 Year
  Sex: Female

DRUGS (1)
  1. EVKEEZA [Suspect]
     Active Substance: EVINACUMAB-DGNB
     Indication: Product used for unknown indication
     Dosage: UNK, FORMULATION: UNKNOWN
     Route: 065
     Dates: start: 20251021

REACTIONS (2)
  - Troponin increased [Unknown]
  - Chest pain [Unknown]

NARRATIVE: CASE EVENT DATE: 20250101
